FAERS Safety Report 25790587 (Version 1)
Quarter: 2025Q3

REPORT INFORMATION
  Report Type: Spontaneous
  Country: US (occurrence: None)
  Receive Date: 20250910
  Receipt Date: 20250910
  Transmission Date: 20251021
  Serious: No
  Sender: FDA-CTU
  Company Number: None

PATIENT
  Age: 61 Year
  Sex: Male

DRUGS (5)
  1. CAPECITABINE [Suspect]
     Active Substance: CAPECITABINE
     Indication: Neoplasm malignant
     Dosage: OTHER QUANTITY : 1 T PO BID WITH 3 T OF THE 500MG TABLETS;?FREQUENCY : TWICE A DAY;?
     Route: 048
     Dates: start: 20250716
  2. CAPECITABINE [Suspect]
     Active Substance: CAPECITABINE
     Dosage: OTHER QUANTITY : 3 T WITH 1 T OF 150 MG;?FREQUENCY : TWICE A DAY;?
     Route: 048
     Dates: start: 20250826
  3. CYCLOBENZAPRINE [Concomitant]
     Active Substance: CYCLOBENZAPRINE
  4. LOSARTAN [Concomitant]
     Active Substance: LOSARTAN
  5. AVASTIN [Concomitant]
     Active Substance: BEVACIZUMAB

REACTIONS (4)
  - Dry skin [None]
  - Skin fissures [None]
  - Erythema [None]
  - Arthralgia [None]

NARRATIVE: CASE EVENT DATE: 20250910
